FAERS Safety Report 12940495 (Version 2)
Quarter: 2016Q4

REPORT INFORMATION
  Report Type: Spontaneous
  Country: US (occurrence: US)
  Receive Date: 20161115
  Receipt Date: 20161115
  Transmission Date: 20170207
  Serious: Yes (Other)
  Sender: FDA-Public Use
  Company Number: PHEH2016US029044

PATIENT
  Sex: Female
  Weight: 90.26 kg

DRUGS (13)
  1. AROMASIN [Suspect]
     Active Substance: EXEMESTANE
     Indication: BREAST CANCER
     Dosage: 25 MG, QD (ONCE IN EVENING)
     Route: 048
     Dates: start: 201604, end: 20160904
  2. METROCREAM [Concomitant]
     Active Substance: METRONIDAZOLE
     Indication: ROSACEA
     Dosage: APPLIES ON FACE
     Route: 065
  3. CAL-CITRATE PLUS VITAMIN D [Concomitant]
     Indication: BONE DISORDER
     Dosage: 630 MG, BID
     Route: 065
  4. ARIMIDEX [Suspect]
     Active Substance: ANASTROZOLE
     Indication: BREAST CANCER
     Route: 065
  5. FEMARA [Suspect]
     Active Substance: LETROZOLE
     Indication: BREAST CANCER
     Dosage: UNK
     Route: 065
     Dates: start: 201511
  6. CYMBALTA [Suspect]
     Active Substance: DULOXETINE HYDROCHLORIDE
     Dosage: 60 MG, UNK
     Route: 065
  7. MAGNESIUM [Concomitant]
     Active Substance: MAGNESIUM
     Indication: PRODUCT USED FOR UNKNOWN INDICATION
     Dosage: 250 MG, BID
     Route: 065
  8. VITAMIN D3 [Concomitant]
     Active Substance: CHOLECALCIFEROL
     Indication: PRODUCT USED FOR UNKNOWN INDICATION
     Dosage: 1000 IU, QD (EVENING)
     Route: 065
  9. AROMASIN [Suspect]
     Active Substance: EXEMESTANE
     Dosage: UNK
     Route: 065
     Dates: start: 20160915
  10. OMEPRAZOLE. [Concomitant]
     Active Substance: OMEPRAZOLE
     Indication: GASTROOESOPHAGEAL REFLUX DISEASE
     Dosage: 20 MG, (FIRST THING IN MORNING)
     Route: 065
  11. SIMVASTATIN. [Suspect]
     Active Substance: SIMVASTATIN
     Indication: BLOOD CHOLESTEROL ABNORMAL
     Dosage: 20 MG, QD (EVENING)
     Route: 048
  12. DULOXETINE. [Suspect]
     Active Substance: DULOXETINE
     Indication: FIBROMYALGIA
     Dosage: 60 MG, QD
     Route: 048
  13. CYMBALTA [Suspect]
     Active Substance: DULOXETINE HYDROCHLORIDE
     Indication: FIBROMYALGIA
     Dosage: 30 MG, QD
     Route: 048

REACTIONS (10)
  - Dizziness [Not Recovered/Not Resolved]
  - Concomitant disease aggravated [Unknown]
  - Pain [Unknown]
  - Weight increased [Not Recovered/Not Resolved]
  - Limb injury [Unknown]
  - Amnesia [Not Recovered/Not Resolved]
  - Drug ineffective [Unknown]
  - Fibromyalgia [Unknown]
  - Drug hypersensitivity [Unknown]
  - Feeling abnormal [Recovering/Resolving]

NARRATIVE: CASE EVENT DATE: 2016
